FAERS Safety Report 16890257 (Version 12)
Quarter: 2022Q1

REPORT INFORMATION
  Report Type: Report from Study
  Country: FI (occurrence: None)
  Receive Date: 20191007
  Receipt Date: 20220210
  Transmission Date: 20220423
  Serious: Yes (Hospitalization)
  Sender: FDA-Public Use
  Company Number: FI-ROCHE-2428793

PATIENT
  Age: 69 Year
  Sex: Female
  Weight: 51 kg

DRUGS (28)
  1. ATEZOLIZUMAB [Suspect]
     Active Substance: ATEZOLIZUMAB
     Indication: Ovarian cancer
     Dosage: DATE OF MOST RECENT DOSE OF ATEZOLIZUMAB PRIOR TO AE ONSET ON 18/JUN/2019: 1200 MG
     Route: 041
     Dates: start: 20190207
  2. BEVACIZUMAB [Suspect]
     Active Substance: BEVACIZUMAB
     Indication: Ovarian cancer
     Dosage: DOSE OF LAST BEVACIZUMAB ADMINISTERED PRIOR TO AE ONSET 730 MG ON 10/SEP/2019
     Route: 042
     Dates: start: 20190227
  3. BEVACIZUMAB [Suspect]
     Active Substance: BEVACIZUMAB
     Route: 042
     Dates: start: 20200227
  4. PACLITAXEL [Suspect]
     Active Substance: PACLITAXEL
     Indication: Ovarian cancer
     Dosage: DOSE OF LAST PACLITAXEL ADMINISTERED PRIOR TO AE ONSET 261 MG ON 29/MAY/2019
     Route: 042
     Dates: start: 20190207
  5. CARBOPLATIN [Suspect]
     Active Substance: CARBOPLATIN
     Indication: Ovarian cancer
     Dosage: DOSE OF LAST CARBOPLATIN ADMINISTERED PRIOR TO AE ONSET 541 MG ON 29/MAY/2019
     Route: 042
     Dates: start: 20190207
  6. CHOLECALCIFEROL [Concomitant]
     Active Substance: CHOLECALCIFEROL
  7. PANTOPRAZOLE SODIUM [Concomitant]
     Active Substance: PANTOPRAZOLE SODIUM
     Dates: start: 20190206
  8. IBUPROFEN [Concomitant]
     Active Substance: IBUPROFEN
     Indication: Pain
  9. PANADOL [Concomitant]
     Active Substance: ACETAMINOPHEN
     Indication: Pain
  10. POLYETHYLENE GLYCOL 4000 [Concomitant]
     Active Substance: POLYETHYLENE GLYCOL 4000
     Indication: Constipation
     Dates: start: 20190206, end: 20190910
  11. CARDACE (FINLAND) [Concomitant]
     Indication: Hypertension
     Dates: start: 20190529, end: 20210510
  12. AMLODIPINE BESYLATE [Concomitant]
     Active Substance: AMLODIPINE BESYLATE
     Indication: Hypertension
     Dates: start: 20190712, end: 20200625
  13. CARBIMAZOLE [Concomitant]
     Active Substance: CARBIMAZOLE
     Indication: Hypothyroidism
     Dates: start: 20190712, end: 20200804
  14. CARBOMER [Concomitant]
     Active Substance: CARBOMER
     Dates: start: 20190712
  15. CARBOMER [Concomitant]
     Active Substance: CARBOMER
     Indication: Dry eye
     Dates: start: 20190830
  16. DIAZEPAM [Concomitant]
     Active Substance: DIAZEPAM
     Indication: Premedication
     Dosage: PREMEDICATION FOR EYE OPERATION
     Dates: start: 20191021, end: 20191021
  17. ZINACEF [Concomitant]
     Active Substance: CEFUROXIME SODIUM
     Indication: Premedication
     Dosage: PREMEDICATION FOR EYE OPERATION
     Dates: start: 20191021, end: 20191021
  18. ADRENALINE;LIDOCAINE [Concomitant]
     Indication: Premedication
     Dosage: PREMEDICATION FOR EYE OPERATION
     Dates: start: 20191021, end: 20191021
  19. FENTANYL [Concomitant]
     Active Substance: FENTANYL
     Dosage: MEDICATION FOR EYE OPERATION
     Dates: start: 20191021, end: 20191021
  20. ROCURONIUM [Concomitant]
     Active Substance: ROCURONIUM BROMIDE
     Dosage: MEDICATION FOR EYE OPERATION
     Dates: start: 20191021, end: 20191021
  21. ORADEXON [Concomitant]
     Active Substance: DEXAMETHASONE
     Dosage: PREMEDICATION FOR EYE OPERATION
     Route: 042
     Dates: start: 20191021, end: 20191021
  22. GLYCOSTIGMIN [Concomitant]
     Dosage: MEDICATION FOR EYE OPERATION
     Dates: start: 20191021, end: 20191021
  23. ACETAMINOPHEN [Concomitant]
     Active Substance: ACETAMINOPHEN
     Dosage: MEDICATION FOR EYE OPERATION
     Dates: start: 20191021, end: 20191021
  24. ONDANSETRON [Concomitant]
     Active Substance: ONDANSETRON
     Dosage: MEDICATION FOR EYE OPERATION
     Dates: start: 20191021, end: 20191021
  25. PROPOFOL [Concomitant]
     Active Substance: PROPOFOL
     Dosage: ANESTHETIC FOR EYE OPERATION
     Dates: start: 20191021, end: 20191021
  26. PROPOFOL [Concomitant]
     Active Substance: PROPOFOL
     Dosage: ANESTHETIC FOR EYE OPERATION
     Dates: start: 20191021, end: 20191021
  27. HUMAN IMMUNOGLOBULIN G [Concomitant]
     Active Substance: HUMAN IMMUNOGLOBULIN G
     Dates: start: 20200203, end: 20200203
  28. FUROSEMIDE [Concomitant]
     Active Substance: FUROSEMIDE
     Dates: start: 20200505

REACTIONS (1)
  - Optic neuropathy [Not Recovered/Not Resolved]

NARRATIVE: CASE EVENT DATE: 20190917
